FAERS Safety Report 4009638 (Version 3)
Quarter: 2013Q1

REPORT INFORMATION
  Report Type: Report from Study
  Country: US (occurrence: US)
  Receive Date: 20031008
  Receipt Date: 20130315
  Transmission Date: 20140127
  Serious: Yes (Death, Life-Threatening, Other)
  Sender: FDA-Public Use
  Company Number: US-BRISTOL-MYERS SQUIBB COMPANY-12403424

PATIENT
  Age: 75 Year
  Sex: Male
  Weight: 87.3 kg

DRUGS (3)
  1. CISPLATIN [Suspect]
     Indication: BLADDER CANCER
     Dosage: ADMINISTERED ON DAY 1
     Route: 042
     Dates: start: 20030424, end: 20030605
  2. PACLITAXEL [Suspect]
     Indication: BLADDER CANCER
     Route: 042
     Dates: start: 20030424, end: 20030612
  3. GEMZAR [Suspect]
     Indication: BLADDER CANCER
     Dosage: DOSING ON DAY 1 + 8 OF CYCLE?1ST DOSE ON 24APR03
     Route: 042
     Dates: start: 20030424, end: 20030612

REACTIONS (2)
  - Malignant neoplasm progression [Fatal]
  - Bone marrow failure [Not Recovered/Not Resolved]
